FAERS Safety Report 16900454 (Version 1)
Quarter: 2019Q4

REPORT INFORMATION
  Report Type: Spontaneous
  Country: US (occurrence: US)
  Receive Date: 20190816
  Receipt Date: 20190816
  Transmission Date: 20200122
  Serious: Yes (Hospitalization)
  Sender: FDA-Public Use
  Company Number: None

PATIENT
  Age: 60 Year
  Sex: Male
  Weight: 75 kg

DRUGS (2)
  1. CARBOPLATIN. [Suspect]
     Active Substance: CARBOPLATIN
     Dates: end: 20190515
  2. TAXOL [Suspect]
     Active Substance: PACLITAXEL
     Dates: end: 20190515

REACTIONS (3)
  - Fall [None]
  - Oedema [None]
  - Metastases to central nervous system [None]

NARRATIVE: CASE EVENT DATE: 20190729
